FAERS Safety Report 24245434 (Version 1)
Quarter: 2024Q3

REPORT INFORMATION
  Report Type: Report from Study
  Country: CO (occurrence: None)
  Receive Date: 20240824
  Receipt Date: 20240824
  Transmission Date: 20241017
  Serious: Yes (Death)
  Sender: ASTRAZENECA
  Company Number: 2024A192386

PATIENT

DRUGS (1)
  1. OSIMERTINIB [Suspect]
     Active Substance: OSIMERTINIB
     Indication: Non-small cell lung cancer
     Route: 048

REACTIONS (1)
  - Febrile neutropenia [Fatal]
